FAERS Safety Report 16356306 (Version 1)
Quarter: 2019Q2

REPORT INFORMATION
  Report Type: Report from Study
  Country: None (occurrence: GB)
  Receive Date: 20190527
  Receipt Date: 20190527
  Transmission Date: 20190711
  Serious: Yes (Hospitalization)
  Sender: FDA-Public Use
  Company Number: GB-ABBVIE-19K-167-2791366-00

PATIENT
  Age: 33 Year
  Sex: Male

DRUGS (2)
  1. IMRALDI [Suspect]
     Active Substance: ADALIMUMAB
     Indication: ANKYLOSING SPONDYLITIS
     Route: 058
     Dates: start: 20190413, end: 2019
  2. HUMIRA [Suspect]
     Active Substance: ADALIMUMAB
     Indication: PRODUCT USED FOR UNKNOWN INDICATION
     Route: 058

REACTIONS (9)
  - Sepsis [Unknown]
  - Body temperature increased [Unknown]
  - Pain in extremity [Unknown]
  - Chest pain [Unknown]
  - Drug hypersensitivity [Unknown]
  - Headache [Unknown]
  - Malaise [Unknown]
  - Tonsillitis [Not Recovered/Not Resolved]
  - Vision blurred [Unknown]
